FAERS Safety Report 10592313 (Version 2)
Quarter: 2014Q4

REPORT INFORMATION
  Report Type: Report from Study
  Country: DE (occurrence: DE)
  Receive Date: 20141119
  Receipt Date: 20141129
  Transmission Date: 20150529
  Serious: Yes (Death)
  Sender: FDA-Public Use
  Company Number: DE-ROCHE-1493188

PATIENT
  Age: 86 Year
  Sex: Female
  Weight: 74 kg

DRUGS (2)
  1. RANIBIZUMAB [Suspect]
     Active Substance: RANIBIZUMAB
     Dosage: 1.25 OT.?DATE OF LAST DOSE PRIOR TO SAE: 19/MAY/2014.
     Route: 050
  2. RANIBIZUMAB [Suspect]
     Active Substance: RANIBIZUMAB
     Indication: VISUAL IMPAIRMENT
     Dosage: 1.25 OT.??DATE OF LAST DOSE PRIOR TO SAE: 19/
     Route: 050
     Dates: start: 20140311

REACTIONS (1)
  - Cardiac arrest [Fatal]

NARRATIVE: CASE EVENT DATE: 20140520
